FAERS Safety Report 6264664-2 (Version None)
Quarter: 2009Q3

REPORT INFORMATION
  Report Type: 
  Country: None (occurrence: None)
  Receive Date: 20090710
  Receipt Date: 20090707
  Transmission Date: 20100115
  Serious: Yes (Hospitalization)
  Sender: FDA-Public Use
  Company Number: PT-ROXANE LABORATORIES, INC.-2009-RO-00653RO

PATIENT
  Age: 35 Year
  Sex: Male

DRUGS (3)
  1. AZATHIOPRINE [Suspect]
     Indication: COLITIS ULCERATIVE
  2. AZATHIOPRINE [Suspect]
     Indication: PYODERMA GANGRENOSUM
  3. AMINOSALICYLATES [Suspect]
     Indication: COLITIS ULCERATIVE
     Dosage: 1.5 G

REACTIONS (4)
  - ABDOMINAL PAIN [None]
  - EPSTEIN-BARR VIRUS ASSOCIATED LYMPHOPROLIFERATIVE DISORDER [None]
  - HAEMATOCHEZIA [None]
  - PYREXIA [None]
